FAERS Safety Report 7004153-0 (Version None)
Quarter: 2010Q3

REPORT INFORMATION
  Report Type: 
  Country: None (occurrence: None)
  Receive Date: 20100920
  Receipt Date: 20100222
  Transmission Date: 20110219
  Serious: No
  Sender: FDA-Public Use
  Company Number: US-WYE-H13769610

PATIENT
  Sex: Female

DRUGS (6)
  1. PRISTIQ [Suspect]
     Indication: DEPRESSION
     Route: 048
     Dates: start: 20090901, end: 20090101
  2. PRISTIQ [Suspect]
     Route: 048
     Dates: start: 20100201
  3. TOPROL-XL [Concomitant]
  4. ENALAPRIL [Concomitant]
  5. MELLARIL [Concomitant]
  6. ASPIRIN [Concomitant]

REACTIONS (5)
  - APATHY [None]
  - CONFUSIONAL STATE [None]
  - MYDRIASIS [None]
  - UNEVALUABLE EVENT [None]
  - VISION BLURRED [None]
